FAERS Safety Report 23599507 (Version 1)
Quarter: 2024Q1

REPORT INFORMATION
  Report Type: Spontaneous
  Country: GB (occurrence: GB)
  Receive Date: 20240306
  Receipt Date: 20240306
  Transmission Date: 20240410
  Serious: Yes (Other)
  Sender: FDA-Public Use
  Company Number: GB-ABBVIE-5662659

PATIENT
  Sex: Male

DRUGS (1)
  1. RINVOQ [Suspect]
     Active Substance: UPADACITINIB
     Indication: Crohn^s disease
     Dosage: FREQUENCY TEXT: MAINTENANCE
     Route: 048

REACTIONS (3)
  - Blindness [Unknown]
  - Rectal haemorrhage [Unknown]
  - Unevaluable event [Unknown]
